FAERS Safety Report 11374914 (Version 3)
Quarter: 2015Q3

REPORT INFORMATION
  Report Type: Spontaneous
  Country: BR (occurrence: BR)
  Receive Date: 20150813
  Receipt Date: 20150930
  Transmission Date: 20151125
  Serious: Yes (Other)
  Sender: FDA-Public Use
  Company Number: BR-SA-2015SA118463

PATIENT
  Age: 44 Year
  Sex: Male
  Weight: 73 kg

DRUGS (2)
  1. LANTUS [Suspect]
     Active Substance: INSULIN GLARGINE
     Indication: DIABETES MELLITUS
     Dosage: SINCE APPROX. 5-6 MONTHS
     Route: 058
     Dates: start: 2015
  2. ARTROSIL [Concomitant]
     Active Substance: KETOPROFEN LYSINE
     Indication: PAIN
     Route: 048

REACTIONS (3)
  - Intervertebral disc protrusion [Not Recovered/Not Resolved]
  - Movement disorder [Not Recovered/Not Resolved]
  - Unevaluable event [Not Recovered/Not Resolved]

NARRATIVE: CASE EVENT DATE: 20150717
